FAERS Safety Report 8196798-X (Version None)
Quarter: 2012Q1

REPORT INFORMATION
  Report Type: 
  Country: None (occurrence: None)
  Receive Date: 20120309
  Receipt Date: 20120306
  Transmission Date: 20120608
  Serious: Yes (Other)
  Sender: FDA-Public Use
  Company Number: US-PFIZER INC-2012040867

PATIENT
  Sex: Male

DRUGS (2)
  1. SUTENT [Suspect]
     Dosage: 25 MG, 2X/DAY
     Dates: start: 20120116
  2. SUTENT [Suspect]
     Indication: METASTATIC RENAL CELL CARCINOMA
     Dosage: 25 MG, 2X/DAY
     Dates: start: 20111201

REACTIONS (4)
  - NAUSEA [None]
  - ORAL PAIN [None]
  - ATRIOVENTRICULAR BLOCK [None]
  - DYSGEUSIA [None]
